FAERS Safety Report 4857704-6 (Version None)
Quarter: 2005Q4

REPORT INFORMATION
  Report Type: 
  Country: None (occurrence: None)
  Receive Date: 20051219
  Receipt Date: 20050610
  Transmission Date: 20060501
  Serious: No
  Sender: FDA-Public Use
  Company Number: US-GLAXOSMITHKLINE-A0562167A

PATIENT
  Age: 39 Year
  Sex: Female

DRUGS (1)
  1. NICODERM CQ [Suspect]
     Dates: start: 20050609, end: 20050609

REACTIONS (1)
  - APPLICATION SITE REACTION [None]
